FAERS Safety Report 6196422-1 (Version None)
Quarter: 2009Q2

REPORT INFORMATION
  Report Type: 
  Country: None (occurrence: None)
  Receive Date: 20090518
  Receipt Date: 20090518
  Transmission Date: 20091009
  Serious: Yes (Other)
  Sender: FDA-Public Use
  Company Number: None

PATIENT
  Age: 74 Year
  Sex: Male
  Weight: 131.5431 kg

DRUGS (1)
  1. DIOVAN [Suspect]
     Dosage: 40 MG/DAY

REACTIONS (3)
  - CONTUSION [None]
  - FALL [None]
  - IMPAIRED HEALING [None]
